FAERS Safety Report 19026232 (Version 1)
Quarter: 2021Q1

REPORT INFORMATION
  Report Type: Spontaneous
  Country: JP (occurrence: JP)
  Receive Date: 20210318
  Receipt Date: 20210318
  Transmission Date: 20210420
  Serious: Yes (Hospitalization, Other)
  Sender: FDA-Public Use
  Company Number: JP-AMGEN-JPNSP2021041762

PATIENT

DRUGS (3)
  1. NESP [Suspect]
     Active Substance: DARBEPOETIN ALFA
     Indication: PRODUCT USED FOR UNKNOWN INDICATION
     Dosage: 180 UG, 1X/2 WEEKS
     Route: 065
     Dates: start: 202102
  2. NESP [Suspect]
     Active Substance: DARBEPOETIN ALFA
     Dosage: UNK UNK, 1X/WEEK
     Route: 065
     Dates: start: 202103
  3. NESP [Suspect]
     Active Substance: DARBEPOETIN ALFA
     Dosage: 120 UG, 1X/2 WEEKS
     Route: 065

REACTIONS (1)
  - Azotaemia [Unknown]
